FAERS Safety Report 14174005 (Version 2)
Quarter: 2018Q1

REPORT INFORMATION
  Report Type: Spontaneous
  Country: CA (occurrence: CA)
  Receive Date: 20171109
  Receipt Date: 20180130
  Transmission Date: 20180508
  Serious: Yes (Other)
  Sender: FDA-Public Use
  Company Number: CA-CONCORDIA PHARMACEUTICALS INC.-GSH201711-006295

PATIENT
  Age: 54 Year
  Sex: Female

DRUGS (39)
  1. HUMIRA [Suspect]
     Active Substance: ADALIMUMAB
     Route: 065
  2. METHOTREXATE. [Suspect]
     Active Substance: METHOTREXATE
     Route: 065
  3. ORENCIA [Suspect]
     Active Substance: ABATACEPT
     Indication: PRODUCT USED FOR UNKNOWN INDICATION
     Route: 065
  4. ESTRACE [Concomitant]
     Active Substance: ESTRADIOL
  5. MUPIROCIN. [Concomitant]
     Active Substance: MUPIROCIN
  6. TRAMACET [Concomitant]
     Active Substance: ACETAMINOPHEN\TRAMADOL
  7. HYDROMORPHONE HYDROCHLORIDE. [Concomitant]
     Active Substance: HYDROMORPHONE HYDROCHLORIDE
  8. HUMIRA [Suspect]
     Active Substance: ADALIMUMAB
     Route: 065
  9. TRAMADOL HYDROCHLORIDE. [Concomitant]
     Active Substance: TRAMADOL HYDROCHLORIDE
  10. ENBREL [Suspect]
     Active Substance: ETANERCEPT
     Route: 065
  11. CIPRALEX [Concomitant]
     Active Substance: ESCITALOPRAM OXALATE
  12. ENBREL [Suspect]
     Active Substance: ETANERCEPT
     Route: 065
  13. HUMIRA [Suspect]
     Active Substance: ADALIMUMAB
     Route: 065
  14. METHOTREXATE. [Suspect]
     Active Substance: METHOTREXATE
     Route: 065
  15. ESTROGENS CONJUGATED [Concomitant]
     Active Substance: ESTROGENS, CONJUGATED
  16. CYMBALTA [Concomitant]
     Active Substance: DULOXETINE HYDROCHLORIDE
  17. SHARK-LIVER OIL [Concomitant]
  18. HYDROCHLOROTHIAZIDE. [Concomitant]
     Active Substance: HYDROCHLOROTHIAZIDE
  19. HYDROXYCHLOROQUINE [Suspect]
     Active Substance: HYDROXYCHLOROQUINE
     Indication: PRODUCT USED FOR UNKNOWN INDICATION
     Route: 065
  20. HUMIRA [Suspect]
     Active Substance: ADALIMUMAB
     Route: 065
  21. METHOTREXATE. [Suspect]
     Active Substance: METHOTREXATE
     Route: 065
  22. PREDNISONE. [Concomitant]
     Active Substance: PREDNISONE
  23. TAPENTADOL [Concomitant]
     Active Substance: TAPENTADOL
  24. LEFLUNOMIDE. [Suspect]
     Active Substance: LEFLUNOMIDE
     Route: 048
  25. ENBREL [Suspect]
     Active Substance: ETANERCEPT
     Route: 065
  26. HUMIRA [Suspect]
     Active Substance: ADALIMUMAB
     Route: 065
  27. ALTACE [Concomitant]
     Active Substance: RAMIPRIL
  28. GABAPENTIN. [Concomitant]
     Active Substance: GABAPENTIN
  29. LEFLUNOMIDE. [Suspect]
     Active Substance: LEFLUNOMIDE
     Indication: PRODUCT USED FOR UNKNOWN INDICATION
     Route: 048
  30. HUMIRA [Suspect]
     Active Substance: ADALIMUMAB
     Route: 065
  31. SULFASALAZINE. [Suspect]
     Active Substance: SULFASALAZINE
     Indication: RHEUMATOID ARTHRITIS
     Route: 048
  32. ATORVASTATIN [Concomitant]
     Active Substance: ATORVASTATIN
  33. CITALOPRAM HYDROBROMIDE. [Concomitant]
     Active Substance: CITALOPRAM HYDROBROMIDE
  34. CELEBREX [Suspect]
     Active Substance: CELECOXIB
     Indication: PRODUCT USED FOR UNKNOWN INDICATION
     Route: 048
  35. ENBREL [Suspect]
     Active Substance: ETANERCEPT
     Indication: RHEUMATOID ARTHRITIS
     Route: 065
  36. HUMIRA [Suspect]
     Active Substance: ADALIMUMAB
     Indication: PRODUCT USED FOR UNKNOWN INDICATION
     Route: 065
  37. HUMIRA [Suspect]
     Active Substance: ADALIMUMAB
     Route: 065
  38. HUMIRA [Suspect]
     Active Substance: ADALIMUMAB
     Route: 065
  39. METHOTREXATE. [Suspect]
     Active Substance: METHOTREXATE
     Indication: RHEUMATOID ARTHRITIS
     Route: 065

REACTIONS (2)
  - Rheumatoid arthritis [Unknown]
  - Drug effect incomplete [Unknown]
